FAERS Safety Report 25850247 (Version 2)
Quarter: 2025Q4

REPORT INFORMATION
  Report Type: Spontaneous
  Country: US (occurrence: US)
  Receive Date: 20250926
  Receipt Date: 20251112
  Transmission Date: 20260118
  Serious: No
  Sender: TOLMAR
  Company Number: US-Tolmar-TLM-2025-06893

PATIENT

DRUGS (3)
  1. ELIGARD [Suspect]
     Active Substance: LEUPROLIDE ACETATE
     Indication: Prostate cancer
     Dosage: SYRINGE A: 15309AUS EXP:10-2026?SYRINGE B: 15309BUS: 09-2026?15309CUS EXP: 30-SEP-2026?SERIAL: 47245
  2. ELIGARD [Suspect]
     Active Substance: LEUPROLIDE ACETATE
     Dosage: REPLACEMENT DOSE
  3. DEVICE [Suspect]
     Active Substance: DEVICE
     Indication: Prostate cancer
     Dosage: SYRINGE A: 15309AUS EXP:10-2026?SYRINGE B: 15309BUS: 09-2026?15309CUS EXP: 30-SEP-2026?SERIAL: 47245

REACTIONS (2)
  - Intercepted product preparation error [Unknown]
  - Device leakage [Unknown]
